FAERS Safety Report 15193921 (Version 1)
Quarter: 2018Q3

REPORT INFORMATION
  Report Type: Other
  Country: US (occurrence: US)
  Receive Date: 20180725
  Receipt Date: 20180725
  Transmission Date: 20181010
  Serious: Yes (Life-Threatening, Hospitalization, Other)
  Sender: FDA-Public Use
  Company Number: US-C B FLEET CO INC-201807-US-001561

PATIENT
  Age: 36 Year
  Sex: Female

DRUGS (1)
  1. ASPIRIN. [Suspect]
     Active Substance: ASPIRIN
     Indication: PRODUCT USED FOR UNKNOWN INDICATION
     Dosage: 12.5?25G OF ENTERIC COATED ASPIRIN
     Route: 048

REACTIONS (6)
  - Vomiting [Unknown]
  - Tachypnoea [Unknown]
  - Maternal exposure during pregnancy [Recovered/Resolved]
  - Intentional overdose [None]
  - Tinnitus [Unknown]
  - Nausea [Unknown]
